FAERS Safety Report 7940210-X (Version None)
Quarter: 2011Q4

REPORT INFORMATION
  Report Type: 
  Country: None (occurrence: None)
  Receive Date: 20111126
  Receipt Date: 20110907
  Transmission Date: 20120403
  Serious: No
  Sender: FDA-Public Use
  Company Number: US-BAYER-2011-091659

PATIENT
  Age: 68 Year
  Sex: Female
  Weight: 68 kg

DRUGS (15)
  1. FISH OIL [Concomitant]
  2. ASCORBIC ACID [Concomitant]
  3. PROBIOTICS [Concomitant]
  4. VOLTAREN [Concomitant]
     Dosage: UNK
  5. VAGIFEM [Concomitant]
  6. CELEXA [Concomitant]
  7. GLUCOSE E [Concomitant]
  8. TREE BARK [Concomitant]
  9. CALTRATE + D [CALCIUM,VITAMIN D NOS] [Concomitant]
  10. CENTRUM [Concomitant]
  11. MSN POWDER [Concomitant]
  12. VITAMIN D [Concomitant]
  13. ALEVE (CAPLET) [Suspect]
     Indication: OSTEOARTHRITIS
     Dosage: 4 DF, QD
     Dates: start: 20090901, end: 20100501
  14. ALEVE (CAPLET) [Suspect]
     Dosage: 1 DF, BID
     Dates: start: 20090901
  15. CLA [Concomitant]

REACTIONS (1)
  - NO ADVERSE EVENT [None]
